FAERS Safety Report 5798128-7 (Version None)
Quarter: 2008Q3

REPORT INFORMATION
  Report Type: 
  Country: None (occurrence: None)
  Receive Date: 20080702
  Receipt Date: 20080201
  Transmission Date: 20090109
  Serious: No
  Sender: FDA-Public Use
  Company Number: US-ASTRAZENECA-2008UW02314

PATIENT

DRUGS (1)
  1. ZOLADEX [Suspect]
     Route: 058

REACTIONS (2)
  - IMPLANT EXPULSION [None]
  - MALAISE [None]
